FAERS Safety Report 24555684 (Version 1)
Quarter: 2024Q4

REPORT INFORMATION
  Report Type: Spontaneous
  Country: US (occurrence: US)
  Receive Date: 20241028
  Receipt Date: 20241028
  Transmission Date: 20250115
  Serious: Yes (Other)
  Sender: UCB
  Company Number: US-UCBSA-2024054811

PATIENT
  Sex: Female
  Weight: 111.1 kg

DRUGS (2)
  1. CIMZIA [Suspect]
     Active Substance: CERTOLIZUMAB PEGOL
     Indication: Rheumatoid arthritis
     Dosage: 400 MILLIGRAM, EV 2 WEEKS(QOW)
     Route: 058
  2. HUMIRA [Suspect]
     Active Substance: ADALIMUMAB
     Indication: Product used for unknown indication

REACTIONS (3)
  - Medical device implantation [Unknown]
  - Drug hypersensitivity [Unknown]
  - Needle issue [Unknown]
